FAERS Safety Report 7150696-9 (Version None)
Quarter: 2010Q4

REPORT INFORMATION
  Report Type: 
  Country: None (occurrence: None)
  Receive Date: 20101210
  Receipt Date: 20101130
  Transmission Date: 20110411
  Serious: Yes (Other)
  Sender: FDA-Public Use
  Company Number: US-JNJFOC-20101000594

PATIENT
  Sex: Male
  Weight: 88.91 kg

DRUGS (6)
  1. REMICADE [Suspect]
     Indication: CROHN'S DISEASE
     Route: 042
  2. REMICADE [Suspect]
     Dosage: ^FOR YEARS^
     Route: 042
  3. IMURAN [Concomitant]
     Indication: CROHN'S DISEASE
  4. OMEPRAZOLE [Concomitant]
  5. VITAMIN B-12 [Concomitant]
  6. BENAZEPRIL HYDROCHLORIDE [Concomitant]
     Indication: HYPERTENSION

REACTIONS (4)
  - ACTIVATED PARTIAL THROMBOPLASTIN TIME PROLONGED [None]
  - ANTIPHOSPHOLIPID ANTIBODIES POSITIVE [None]
  - COAGULOPATHY [None]
  - INFUSION SITE THROMBOSIS [None]
